FAERS Safety Report 6793008-2 (Version None)
Quarter: 2010Q2

REPORT INFORMATION
  Report Type: 
  Country: None (occurrence: None)
  Receive Date: 20100624
  Receipt Date: 20081113
  Transmission Date: 20101027
  Serious: No
  Sender: FDA-Public Use
  Company Number: US-PFIZER INC-2008096329

PATIENT

DRUGS (1)
  1. GEODON [Suspect]

REACTIONS (3)
  - DYSKINESIA [None]
  - EXTRAPYRAMIDAL DISORDER [None]
  - INCORRECT DOSE ADMINISTERED [None]
